FAERS Safety Report 8482639-X (Version None)
Quarter: 2012Q3

REPORT INFORMATION
  Report Type: 
  Country: None (occurrence: None)
  Receive Date: 20120702
  Receipt Date: 20120627
  Transmission Date: 20120928
  Serious: Yes (Hospitalization, Disabling, Other)
  Sender: FDA-Public Use
  Company Number: US-MERCK-1203USA03297

PATIENT
  Age: 56 Year
  Sex: Female
  Weight: 75 kg

DRUGS (14)
  1. FOSAMAX [Suspect]
     Indication: OSTEOPENIA
     Route: 048
     Dates: start: 19990210
  2. FOSAMAX [Suspect]
     Route: 048
     Dates: start: 19990801, end: 20080101
  3. FOSAMAX [Suspect]
     Route: 048
     Dates: start: 20020808, end: 20080101
  4. FOSAMAX [Suspect]
     Route: 048
     Dates: start: 19990801, end: 20080101
  5. FOSAMAX [Suspect]
     Route: 048
     Dates: start: 20020808, end: 20080101
  6. CENTRUM (MINERALS (UNSPECIFIED) (+) VITAMINS (UNSPECIFIED)) [Concomitant]
     Route: 065
     Dates: start: 19970101
  7. VITAMIN D (UNSPECIFIED) [Concomitant]
     Route: 065
     Dates: start: 19970101
  8. FOSAMAX [Suspect]
     Route: 048
     Dates: start: 19990801, end: 20080101
  9. FOSAMAX [Suspect]
     Route: 048
     Dates: start: 19990801, end: 20080101
  10. FOSAMAX [Suspect]
     Indication: OSTEOPOROSIS
     Route: 048
     Dates: start: 19990210
  11. FOSAMAX [Suspect]
     Route: 048
     Dates: start: 20080930, end: 20081206
  12. FOSAMAX [Suspect]
     Route: 048
     Dates: start: 20080930, end: 20081206
  13. FOSAMAX [Suspect]
     Route: 048
     Dates: start: 20080402, end: 20080531
  14. CALCIUM (UNSPECIFIED) [Concomitant]
     Route: 065
     Dates: start: 19970101

REACTIONS (18)
  - FALL [None]
  - FOOT FRACTURE [None]
  - URINARY RETENTION [None]
  - HIP FRACTURE [None]
  - HAEMATOMA [None]
  - ANAEMIA POSTOPERATIVE [None]
  - CERVICAL DYSPLASIA [None]
  - HYPERGLYCAEMIA [None]
  - OSTEOPOROSIS [None]
  - PAPILLOMA VIRAL INFECTION [None]
  - HYPERTENSION [None]
  - HYPOKALAEMIA [None]
  - BLOOD CALCIUM DECREASED [None]
  - FEMUR FRACTURE [None]
  - BASAL CELL CARCINOMA [None]
  - STRESS FRACTURE [None]
  - LOW TURNOVER OSTEOPATHY [None]
  - LEUKOCYTOSIS [None]
